FAERS Safety Report 10339823 (Version 1)
Quarter: 2014Q3

REPORT INFORMATION
  Report Type: Spontaneous
  Country: US (occurrence: US)
  Receive Date: 20140724
  Receipt Date: 20140724
  Transmission Date: 20150326
  Serious: No
  Sender: FDA-Public Use
  Company Number: US-ALLERGAN-1313043US

PATIENT
  Sex: Male
  Weight: 69.84 kg

DRUGS (1)
  1. SANCTURA [Suspect]
     Active Substance: TROSPIUM CHLORIDE
     Indication: MICTURITION URGENCY
     Dosage: 20 MG, QD
     Dates: start: 201302, end: 2013

REACTIONS (1)
  - Drug ineffective [Unknown]

NARRATIVE: CASE EVENT DATE: 2013
